FAERS Safety Report 12329850 (Version 3)
Quarter: 2016Q3

REPORT INFORMATION
  Report Type: Spontaneous
  Country: US (occurrence: US)
  Receive Date: 20160503
  Receipt Date: 20160708
  Transmission Date: 20161109
  Serious: Yes (Other)
  Sender: FDA-Public Use
  Company Number: US-009507513-1604USA018029

PATIENT
  Sex: Male
  Weight: 88.44 kg

DRUGS (1)
  1. INTRON A [Suspect]
     Active Substance: INTERFERON ALFA-2B
     Indication: BASAL CELL CARCINOMA
     Dosage: 1.5 MILLION IU, BIW
     Route: 026
     Dates: start: 20000802, end: 20001030

REACTIONS (2)
  - Adverse drug reaction [Unknown]
  - Amyotrophic lateral sclerosis [Not Recovered/Not Resolved]

NARRATIVE: CASE EVENT DATE: 2014
